FAERS Safety Report 5530355-6 (Version None)
Quarter: 2007Q4

REPORT INFORMATION
  Report Type: 
  Country: None (occurrence: None)
  Receive Date: 20071130
  Receipt Date: 20070504
  Transmission Date: 20080405
  Serious: No
  Sender: FDA-Public Use
  Company Number: A0649971A

PATIENT
  Age: 3 Year
  Sex: Female

DRUGS (2)
  1. AUGMENTIN ES-600 [Suspect]
     Dosage: 5ML TWICE PER DAY
     Route: 048
     Dates: start: 20070501
  2. NO CONCURRENT MEDICATION [Concomitant]

REACTIONS (1)
  - VOMITING [None]
